FAERS Safety Report 16686023 (Version 1)
Quarter: 2019Q3

REPORT INFORMATION
  Report Type: Report from Study
  Country: None (occurrence: IE)
  Receive Date: 20190809
  Receipt Date: 20190809
  Transmission Date: 20191004
  Serious: Yes (Death, Hospitalization)
  Sender: FDA-Public Use
  Company Number: IE-ABBVIE-19K-229-2882776-00

PATIENT
  Age: 72 Year
  Sex: Female

DRUGS (1)
  1. HUMIRA [Suspect]
     Active Substance: ADALIMUMAB
     Indication: RHEUMATOID ARTHRITIS
     Route: 058
     Dates: start: 20170220

REACTIONS (5)
  - Malaise [Unknown]
  - Unevaluable event [Unknown]
  - Death [Fatal]
  - Knee operation [Unknown]
  - Cardiac operation [Unknown]

NARRATIVE: CASE EVENT DATE: 201905
